FAERS Safety Report 10090474 (Version 3)
Quarter: 2014Q2

REPORT INFORMATION
  Report Type: Spontaneous
  Country: US (occurrence: None)
  Receive Date: 20140417
  Receipt Date: 20140519
  Transmission Date: 20141212
  Serious: Yes (Hospitalization)
  Sender: FDA-Public Use
  Company Number: UTC-047131

PATIENT
  Age: 71 Year
  Sex: Male

DRUGS (3)
  1. REMODULIN [Suspect]
     Indication: COR PULMONALE CHRONIC
     Dosage: 90.72 UG/KG (0.063 UG/KG, 1 IN 1 MIN), INTRAVENOUS DRIP
     Route: 041
     Dates: start: 20120616
  2. SILDENAFIL (SILDENAFIL) [Concomitant]
  3. LETAIRIS [Concomitant]

REACTIONS (4)
  - Pneumonia [None]
  - Upper respiratory tract infection [None]
  - Disease progression [None]
  - Cor pulmonale chronic [None]
